FAERS Safety Report 7573822-6 (Version None)
Quarter: 2011Q2

REPORT INFORMATION
  Report Type: 
  Country: None (occurrence: None)
  Receive Date: 20110627
  Receipt Date: 20110607
  Transmission Date: 20111010
  Serious: Yes (Hospitalization)
  Sender: FDA-Public Use
  Company Number: A0835216A

PATIENT
  Age: 63 Year
  Sex: Male
  Weight: 136.4 kg

DRUGS (5)
  1. DIOVAN [Concomitant]
  2. LIPITOR [Concomitant]
  3. ZYRTEC [Concomitant]
  4. AVANDARYL [Suspect]
     Indication: DIABETES MELLITUS
     Route: 048
     Dates: start: 20000101, end: 20070322
  5. AVANDIA [Suspect]
     Indication: DIABETES MELLITUS
     Route: 048

REACTIONS (3)
  - CARDIAC FAILURE [None]
  - CORONARY ARTERY DISEASE [None]
  - CARDIAC DISORDER [None]
